FAERS Safety Report 17940954 (Version 1)
Quarter: 2020Q2

REPORT INFORMATION
  Report Type: Spontaneous
  Country: US (occurrence: US)
  Receive Date: 20200624
  Receipt Date: 20200624
  Transmission Date: 20200714
  Serious: Yes (Other)
  Sender: FDA-Public Use
  Company Number: None

PATIENT
  Age: 81 Year
  Sex: Male
  Weight: 81.5 kg

DRUGS (12)
  1. ISOPHANE INSULIN [Concomitant]
     Active Substance: INSULIN NOS
     Dates: start: 20200525, end: 20200602
  2. INSULIN LISPRO [Concomitant]
     Active Substance: INSULIN LISPRO
     Dates: start: 20200525, end: 20200606
  3. POLYETHYLENE GLYCOL [Concomitant]
     Active Substance: POLYETHYLENE GLYCOLS
     Dates: start: 20200527, end: 20200603
  4. AZITHROMYCIN ANHYDROUS. [Concomitant]
     Active Substance: AZITHROMYCIN ANHYDROUS
     Dates: start: 20200525, end: 20200525
  5. HEPARIN [Concomitant]
     Active Substance: HEPARIN SODIUM
     Dates: start: 20200525, end: 20200606
  6. CEFTRIAXONE. [Concomitant]
     Active Substance: CEFTRIAXONE
     Dates: start: 20200525, end: 20200601
  7. PIPERACILLIN/TAZOBACTAM [Concomitant]
     Active Substance: PIPERACILLIN SODIUM\TAZOBACTAM SODIUM
     Dates: start: 20200603, end: 20200605
  8. AMLODIPINE [Concomitant]
     Active Substance: AMLODIPINE BESYLATE
     Dates: start: 20200525, end: 20200606
  9. REMDESIVIR SOLUTION FOR INJECTION [Suspect]
     Active Substance: REMDESIVIR
     Indication: COVID-19
     Route: 040
     Dates: start: 20200526, end: 20200529
  10. METRONIDAZOLE. [Concomitant]
     Active Substance: METRONIDAZOLE
     Dates: start: 20200529, end: 20200601
  11. DOXYCYCLINE. [Concomitant]
     Active Substance: DOXYCYCLINE
     Dates: start: 20200525, end: 20200527
  12. LATANOPROST. [Concomitant]
     Active Substance: LATANOPROST
     Dates: start: 20200525, end: 20200606

REACTIONS (2)
  - Alanine aminotransferase increased [None]
  - Aspartate aminotransferase increased [None]

NARRATIVE: CASE EVENT DATE: 20200530
